FAERS Safety Report 5681584-2 (Version None)
Quarter: 2008Q1

REPORT INFORMATION
  Report Type: 
  Country: None (occurrence: None)
  Receive Date: 20080326
  Receipt Date: 20070220
  Transmission Date: 20080703
  Serious: No
  Sender: FDA-Public Use
  Company Number: US-BAYER-US-2007-006053

PATIENT
  Age: 24 Year
  Sex: Female
  Weight: 121 kg

DRUGS (1)
  1. MIRENA [Suspect]
     Indication: CONTRACEPTION
     Route: 015
     Dates: start: 20061111

REACTIONS (7)
  - BREAST PAIN [None]
  - BREAST SWELLING [None]
  - FEELING ABNORMAL [None]
  - GALACTORRHOEA [None]
  - IUCD COMPLICATION [None]
  - JOINT SWELLING [None]
  - PYREXIA [None]
